FAERS Safety Report 23769932 (Version 1)
Quarter: 2024Q2

REPORT INFORMATION
  Report Type: Spontaneous
  Country: US (occurrence: None)
  Receive Date: 20240421
  Receipt Date: 20240421
  Transmission Date: 20240716
  Serious: No
  Sender: FDA-Public Use
  Company Number: None

PATIENT
  Age: 50 Year
  Sex: Female
  Weight: 101.25 kg

DRUGS (5)
  1. CLOBETASOL PROPIONATE [Suspect]
     Active Substance: CLOBETASOL PROPIONATE
     Indication: Lichen planopilaris
     Dosage: OTHER FREQUENCY : APPLY TO SCALP EVE?
     Route: 061
  2. SYNTHROID [Concomitant]
     Active Substance: LEVOTHYROXINE SODIUM
  3. VITAMINS [Concomitant]
     Active Substance: VITAMINS
  4. ZYRTEC [Concomitant]
     Active Substance: CETIRIZINE HYDROCHLORIDE
  5. XYZAL [Concomitant]
     Active Substance: LEVOCETIRIZINE DIHYDROCHLORIDE

REACTIONS (2)
  - Vision blurred [None]
  - Headache [None]

NARRATIVE: CASE EVENT DATE: 20240421
